FAERS Safety Report 6917948-6 (Version None)
Quarter: 2010Q3

REPORT INFORMATION
  Report Type: 
  Country: None (occurrence: None)
  Receive Date: 20100810
  Receipt Date: 20090911
  Transmission Date: 20110219
  Serious: No
  Sender: FDA-Public Use
  Company Number: US-PFIZER INC-2009252242

PATIENT
  Sex: Female
  Weight: 90.7 kg

DRUGS (8)
  1. TOVIAZ [Suspect]
     Indication: HYPERTONIC BLADDER
     Dosage: 4 MG, 1X/DAY
     Route: 048
     Dates: start: 20090806, end: 20090826
  2. TOVIAZ [Suspect]
     Indication: URINARY INCONTINENCE
  3. PLAVIX [Concomitant]
     Dosage: UNK
  4. PLAVIX [Concomitant]
     Route: 048
  5. CYCLOSPORINE [Concomitant]
     Indication: DRY EYE
  6. COREG [Concomitant]
     Indication: HYPERTENSION
     Dosage: UNK
  7. VYTORIN [Concomitant]
     Indication: BLOOD CHOLESTEROL INCREASED
     Dosage: UNK
  8. ACETYLSALICYLIC ACID [Concomitant]
     Route: 048

REACTIONS (7)
  - CONSTIPATION [None]
  - DRY EYE [None]
  - DRY MOUTH [None]
  - FATIGUE [None]
  - IMPAIRED DRIVING ABILITY [None]
  - INSOMNIA [None]
  - SOMNOLENCE [None]
